FAERS Safety Report 10234965 (Version 2)
Quarter: 2014Q3

REPORT INFORMATION
  Report Type: Spontaneous
  Country: US (occurrence: None)
  Receive Date: 20140521
  Receipt Date: 20140822
  Transmission Date: 20150326
  Serious: Yes (Other)
  Sender: FDA-Public Use
  Company Number: 1000060221

PATIENT
  Age: 65 Year
  Sex: Female
  Weight: 78.5 kg

DRUGS (13)
  1. FETZIMA [Suspect]
     Active Substance: LEVOMILNACIPRAN HYDROCHLORIDE
     Indication: DEPRESSION
     Dosage: 20 MG (20 MG, 1 IN 1 D), ORAL
     Route: 048
     Dates: start: 20140214, end: 20140215
  2. PULMICORT (BUDESONIDE) (BUDESONIDE) [Concomitant]
  3. METFORMIN [Concomitant]
     Active Substance: METFORMIN HYDROCHLORIDE
  4. NEURONTIN (GABAPENTIN) (GABAPENTIN) [Concomitant]
  5. PROTONIX (PANTOPRAZOLE SODIUM SESQUIHYDRATE) (PANTOPRAZOLE SODIUM SESQUIHYDRATE) [Concomitant]
  6. ESTRATEST (ESTRATEST) (ESTRATES) [Concomitant]
  7. ALBUTEROL (ALBUTEROL) (ALBUTEROL) [Concomitant]
     Active Substance: ALBUTEROL
  8. HYDROCHLOROTHIAZIDE (HYDROCHLOROTHIAZIDE) [Suspect]
     Active Substance: HYDROCHLOROTHIAZIDE
     Indication: HYPERTENSION
     Dosage: 1 IN 1 D
     Dates: start: 20130508
  9. METOPROLOL (METOPROLOL) [Suspect]
     Active Substance: METOPROLOL
     Indication: HYPERTENSION
     Dosage: 200 MG (100 MG,2 IN 1 D)
     Route: 048
     Dates: start: 20130621
  10. ADVAIR (SERETIDE) (SERETIDE) [Concomitant]
  11. NORVASC [Suspect]
     Active Substance: AMLODIPINE BESYLATE
     Indication: HYPERTENSION
     Dosage: 1 IN 1 D
     Dates: start: 20130621
  12. GLIPIZIDE (GLIPIZIDE) (GLIPIZIDE) [Concomitant]
  13. SINGULAIR (MONTELUKAST SODIUM) (MONTELUKAST SODIUM) [Concomitant]

REACTIONS (1)
  - Blood pressure increased [None]

NARRATIVE: CASE EVENT DATE: 20140227
